FAERS Safety Report 24663027 (Version 1)
Quarter: 2024Q4

REPORT INFORMATION
  Report Type: Spontaneous
  Country: IT (occurrence: IT)
  Receive Date: 20241126
  Receipt Date: 20241126
  Transmission Date: 20250115
  Serious: Yes (Life-Threatening, Hospitalization, Other)
  Sender: AUROBINDO
  Company Number: IT-MINISAL02-1010930

PATIENT
  Age: 44 Year
  Sex: Female
  Weight: 69 kg

DRUGS (7)
  1. ZOLPIDEM [Suspect]
     Active Substance: ZOLPIDEM TARTRATE
     Indication: Insomnia
     Dosage: 10 MILLIGRAM (UNA COMPRESSA ALLA SERA)
     Route: 048
     Dates: start: 20230314, end: 20240221
  2. FLURAZEPAM [Suspect]
     Active Substance: FLURAZEPAM HYDROCHLORIDE
     Indication: Insomnia
     Dosage: UNK
     Route: 048
     Dates: start: 202303, end: 20240221
  3. DIAZEPAM [Suspect]
     Active Substance: DIAZEPAM
     Indication: Insomnia
     Dosage: 5 MILLIGRAM (5 MG AL MATTINO E 10 MG LA SERA)
     Route: 048
     Dates: start: 20240221, end: 20240916
  4. DELORAZEPAM [Suspect]
     Active Substance: DELORAZEPAM
     Indication: Insomnia
     Dosage: 2 MILLIGRAM (2 MG PER TRE VOLTE AL GIORNO)
     Route: 048
     Dates: start: 20230314, end: 20240221
  5. TIAPRIDE HYDROCHLORIDE [Suspect]
     Active Substance: TIAPRIDE HYDROCHLORIDE
     Indication: Product used for unknown indication
     Dosage: 50 MILLIGRAM (MEZZA COMPRESSA PER TRE VOLTE AL GIORNO)
     Route: 048
     Dates: start: 20240130, end: 20240916
  6. PREGABALIN [Suspect]
     Active Substance: PREGABALIN
     Indication: Anxiety
     Dosage: 75 MILLIGRAM (1 COMPRESSA PER TRE VOLTE AL GIORNO)
     Route: 048
     Dates: start: 20240809, end: 20240916
  7. TRAZODONE HYDROCHLORIDE [Suspect]
     Active Substance: TRAZODONE HYDROCHLORIDE
     Indication: Depression
     Dosage: UNK
     Route: 048
     Dates: start: 20240809, end: 20240916

REACTIONS (15)
  - Alcoholism [Recovered/Resolved]
  - Antisocial behaviour [Recovering/Resolving]
  - Insomnia [Not Recovered/Not Resolved]
  - Feeling jittery [Recovering/Resolving]
  - Intentional self-injury [Recovering/Resolving]
  - Balance disorder [Recovered/Resolved]
  - Disturbance in attention [Not Recovered/Not Resolved]
  - Menstruation irregular [Not Recovered/Not Resolved]
  - Vision blurred [Not Recovered/Not Resolved]
  - Gastrooesophageal reflux disease [Not Recovered/Not Resolved]
  - Weight increased [Recovering/Resolving]
  - Polyuria [Recovering/Resolving]
  - Headache [Recovering/Resolving]
  - Hypotension [Recovering/Resolving]
  - Tremor [Not Recovered/Not Resolved]

NARRATIVE: CASE EVENT DATE: 20230101
